FAERS Safety Report 14360567 (Version 1)
Quarter: 2018Q1

REPORT INFORMATION
  Report Type: Spontaneous
  Country: NL (occurrence: NL)
  Receive Date: 20180106
  Receipt Date: 20180106
  Transmission Date: 20180509
  Serious: Yes (Hospitalization, Other)
  Sender: FDA-Public Use
  Company Number: NL-AUROBINDO-AUR-APL-2018-000997

PATIENT
  Age: 78 Year
  Sex: Male

DRUGS (1)
  1. AMOXICILLIN+CLAVULANIC ACID [Suspect]
     Active Substance: AMOXICILLIN\CLAVULANIC ACID
     Indication: PYELONEPHRITIS
     Dosage: UNK, UNKNOWN FREQ. ()
     Route: 065

REACTIONS (4)
  - Escherichia infection [Unknown]
  - Adenocarcinoma [Recovered/Resolved]
  - Drug ineffective [Unknown]
  - Splenic abscess [Unknown]
